FAERS Safety Report 4290189-X (Version None)
Quarter: 2004Q1

REPORT INFORMATION
  Report Type: 
  Country: None (occurrence: None)
  Receive Date: 20040126
  Receipt Date: 20030826
  Transmission Date: 20041129
  Serious: No
  Sender: FDA-Public Use
  Company Number: USA030537386

PATIENT
  Age: 78 Year
  Sex: Female
  Weight: 63 kg

DRUGS (5)
  1. FORTEO [Suspect]
     Indication: OSTEOPOROSIS
     Dosage: 20 UG/DAY
     Dates: start: 20030514
  2. THYROID TAB [Concomitant]
  3. TRIAMTERENE [Concomitant]
  4. FLURAZEPAM [Concomitant]
  5. BENICAR (BENICAR) [Concomitant]

REACTIONS (6)
  - BONE PAIN [None]
  - CONTUSION [None]
  - DIZZINESS [None]
  - GASTROINTESTINAL DISORDER [None]
  - INJECTION SITE HAEMORRHAGE [None]
  - VISION BLURRED [None]
